FAERS Safety Report 23642730 (Version 1)
Quarter: 2024Q1

REPORT INFORMATION
  Report Type: Spontaneous
  Country: JP (occurrence: JP)
  Receive Date: 20240318
  Receipt Date: 20240318
  Transmission Date: 20240410
  Serious: Yes (Hospitalization)
  Sender: FDA-Public Use
  Company Number: JP-DSJP-DSJ-2024-111415

PATIENT
  Age: 76 Year
  Sex: Female

DRUGS (1)
  1. EDOXABAN TOSYLATE [Suspect]
     Active Substance: EDOXABAN TOSYLATE
     Indication: Paradoxical embolism
     Dosage: 30MG/DAY
     Route: 048

REACTIONS (2)
  - Ruptured cerebral aneurysm [Recovering/Resolving]
  - Off label use [Unknown]
